FAERS Safety Report 11321202 (Version 1)
Quarter: 2015Q3

REPORT INFORMATION
  Report Type: Spontaneous
  Country: DE (occurrence: DE)
  Receive Date: 20150729
  Receipt Date: 20150729
  Transmission Date: 20151125
  Serious: Yes (Other)
  Sender: FDA-Public Use
  Company Number: DE-HOSPIRA-2819710

PATIENT
  Sex: Female

DRUGS (3)
  1. PACLITAXEL TEVA [Suspect]
     Active Substance: PACLITAXEL
     Indication: PRODUCT USED FOR UNKNOWN INDICATION
     Dosage: ONCE
     Dates: start: 20070123, end: 20070123
  2. CYCLOSPORIN [Concomitant]
     Active Substance: CYCLOSPORINE
     Indication: BREAST CANCER
     Dates: start: 20060822
  3. DOXORUBICIN [Concomitant]
     Active Substance: DOXORUBICIN
     Indication: BREAST CANCER
     Dates: start: 20060822

REACTIONS (4)
  - Muscle spasms [Unknown]
  - Paraesthesia [Recovering/Resolving]
  - Bone pain [Recovered/Resolved]
  - Seizure [Not Recovered/Not Resolved]
